FAERS Safety Report 8989214 (Version 1)
Quarter: 2012Q4

REPORT INFORMATION
  Report Type: 
  Country: FR (occurrence: FR)
  Receive Date: 20121227
  Receipt Date: 20121227
  Transmission Date: 20130627
  Serious: Yes (Life-Threatening)
  Sender: FDA-Public Use
  Company Number: FR-MUTUAL PHARMACEUTICAL COMPANY, INC.-IBPF20120011

PATIENT
  Age: 0 Year
  Sex: Female

DRUGS (2)
  1. PEDEA [Suspect]
     Indication: PATENT DUCTUS ARTERIOSUS
     Route: 042
     Dates: start: 20121031, end: 20121031
  2. PEDEA [Suspect]
     Route: 042
     Dates: start: 20121101, end: 20121102

REACTIONS (5)
  - Intestinal perforation [Unknown]
  - Drug ineffective [None]
  - C-reactive protein increased [None]
  - Device related infection [None]
  - Meconium peritonitis [None]
